FAERS Safety Report 25810870 (Version 3)
Quarter: 2025Q4

REPORT INFORMATION
  Report Type: Report from Study
  Country: EU (occurrence: EU)
  Receive Date: 20250917
  Receipt Date: 20251009
  Transmission Date: 20260118
  Serious: Yes (Hospitalization)
  Sender: ABBVIE
  Company Number: EU-ABBVIE-6457698

PATIENT
  Age: 76 Year
  Sex: Male
  Weight: 101 kg

DRUGS (4)
  1. FOSCARBIDOPA\FOSLEVODOPA [Suspect]
     Active Substance: FOSCARBIDOPA\FOSLEVODOPA
     Indication: Parkinson^s disease
     Dosage: LOADING DOSE DRUG: 10 ML, ?CONTINUOUS RATE PUMP SETTING BASE 0.48 ML/H?CONTINUOUS RATE PUMP SETTI...
     Route: 058
     Dates: start: 20241119, end: 20241122
  2. FOSCARBIDOPA\FOSLEVODOPA [Suspect]
     Active Substance: FOSCARBIDOPA\FOSLEVODOPA
     Dosage: LOADING DOSE DRUG: 10 ML, ?CONTINUOUS RATE PUMP SETTING BASE 0.52 ML/H?CONTINUOUS RATE PUMP SETTI...
     Route: 058
     Dates: start: 20241209, end: 20250226
  3. FOSCARBIDOPA\FOSLEVODOPA [Suspect]
     Active Substance: FOSCARBIDOPA\FOSLEVODOPA
     Dosage: LOADING DOSE DRUG: 10 ML, ?CONTINUOUS RATE PUMP SETTING BASE 0.62 ML/H?CONTINUOUS RATE PUMP SETTI...
     Route: 058
     Dates: start: 20250226, end: 20250516
  4. FOSCARBIDOPA\FOSLEVODOPA [Suspect]
     Active Substance: FOSCARBIDOPA\FOSLEVODOPA
     Dosage: LOADING DOSE DRUG: 10 ML, ?CONTINUOUS RATE PUMP SETTING BASE 0.62 ML/H?CONTINUOUS RATE PUMP SETTI...
     Route: 058
     Dates: start: 20250516

REACTIONS (2)
  - Pain [Recovered/Resolved]
  - Pain [Unknown]

NARRATIVE: CASE EVENT DATE: 20250909
